FAERS Safety Report 6501624-8 (Version None)
Quarter: 2009Q4

REPORT INFORMATION
  Report Type: 
  Country: None (occurrence: None)
  Receive Date: 20091216
  Receipt Date: 20091207
  Transmission Date: 20100525
  Serious: Yes (Other)
  Sender: FDA-Public Use
  Company Number: AU-ELI_LILLY_AND_COMPANY-AU200912001629

PATIENT
  Sex: Female

DRUGS (1)
  1. HUMATROPE [Suspect]
     Dosage: 4.5 MG, WEEKLY (1/W)
     Route: 065
     Dates: start: 20090304

REACTIONS (1)
  - PITUITARY TUMOUR RECURRENT [None]
